FAERS Safety Report 23431646 (Version 1)
Quarter: 2024Q1

REPORT INFORMATION
  Report Type: Spontaneous
  Country: US (occurrence: US)
  Receive Date: 20240123
  Receipt Date: 20240123
  Transmission Date: 20240410
  Serious: Yes (Hospitalization)
  Sender: FDA-Public Use
  Company Number: US-BIOCODEX2-2023001287

PATIENT
  Age: 21 Year
  Sex: Female
  Weight: 72.6 kg

DRUGS (8)
  1. DIACOMIT [Suspect]
     Active Substance: STIRIPENTOL
     Indication: Lennox-Gastaut syndrome
     Dosage: 1000 MG BY MOUTH OR G-TUBE THREE ?TIMES DAILY
     Route: 048
     Dates: start: 20230914
  2. DIACOMIT [Suspect]
     Active Substance: STIRIPENTOL
     Indication: Lennox-Gastaut syndrome
     Dosage: 500MG, 500MG, 1000MG VIA G-TUBE IN THREE SEPARATE DOSES EACH DAY
     Route: 050
     Dates: start: 20230914
  3. CLOBAZAM [Concomitant]
     Active Substance: CLOBAZAM
     Indication: Product used for unknown indication
     Route: 065
  4. TOPAMAX [Concomitant]
     Active Substance: TOPIRAMATE
     Indication: Product used for unknown indication
     Route: 065
  5. LAMICTAL [Concomitant]
     Active Substance: LAMOTRIGINE
     Indication: Product used for unknown indication
     Route: 065
  6. DEPAKOTE [Concomitant]
     Active Substance: DIVALPROEX SODIUM
     Indication: Product used for unknown indication
     Route: 065
  7. VALPROIC ACID [Concomitant]
     Active Substance: VALPROIC ACID
     Indication: Product used for unknown indication
     Route: 065
  8. PHENOBARBITAL [Concomitant]
     Active Substance: PHENOBARBITAL
     Indication: Product used for unknown indication
     Route: 065

REACTIONS (4)
  - Hospitalisation [Unknown]
  - Alopecia [Unknown]
  - Product use in unapproved indication [Unknown]
  - Product use issue [Unknown]

NARRATIVE: CASE EVENT DATE: 20230914
